FAERS Safety Report 22211037 (Version 2)
Quarter: 2023Q2

REPORT INFORMATION
  Report Type: Spontaneous
  Country: JP (occurrence: JP)
  Receive Date: 20230414
  Receipt Date: 20230418
  Transmission Date: 20230721
  Serious: Yes (Other)
  Sender: FDA-Public Use
  Company Number: JP-002147023-NVSJ2023JP005822

PATIENT
  Sex: Female

DRUGS (2)
  1. NEORAL [Suspect]
     Active Substance: CYCLOSPORINE
     Indication: Pruritus
     Dosage: CONCENTRATION:25MG+50MG
     Route: 048
  2. RUPAFIN [Concomitant]
     Active Substance: RUPATADINE FUMARATE
     Indication: Pruritus
     Route: 048

REACTIONS (3)
  - Renal impairment [Unknown]
  - Malaise [Unknown]
  - Off label use [Unknown]
